FAERS Safety Report 9995779 (Version 1)
Quarter: 2014Q1

REPORT INFORMATION
  Report Type: Spontaneous
  Country: BR (occurrence: None)
  Receive Date: 20140307
  Receipt Date: 20140307
  Transmission Date: 20141002
  Serious: Yes (Other)
  Sender: FDA-Public Use
  Company Number: BR-TORRENT-00001947

PATIENT
  Age: 61 Year
  Sex: Female

DRUGS (7)
  1. ESPRAN [Suspect]
     Indication: DEPRESSION
     Dosage: ONCE DAILY/ORAL
     Route: 048
     Dates: start: 20140110
  2. ATORVASTATIN [Concomitant]
  3. AAS INFANTIL [Concomitant]
  4. OLCADIL [Concomitant]
  5. ATENOLOL [Concomitant]
  6. LOSARTAN [Concomitant]
  7. BENLCARANLO [Concomitant]

REACTIONS (11)
  - Suicidal ideation [None]
  - Malaise [None]
  - Fatigue [None]
  - Somnolence [None]
  - Productive cough [None]
  - Drug ineffective [None]
  - Crying [None]
  - Fatigue [None]
  - Blood pressure decreased [None]
  - Product quality issue [None]
  - Product substitution issue [None]
